FAERS Safety Report 8549943 (Version 3)
Quarter: 2013Q3

REPORT INFORMATION
  Report Type: Report from Study
  Country: JP (occurrence: JP)
  Receive Date: 20120507
  Receipt Date: 20130905
  Transmission Date: 20140515
  Serious: Yes (Hospitalization, Other)
  Sender: FDA-Public Use
  Company Number: JP-BRISTOL-MYERS SQUIBB COMPANY-16539686

PATIENT
  Age: 47 Year
  Sex: Male
  Weight: 79.1 kg

DRUGS (10)
  1. ABILIFY TABS [Suspect]
     Indication: SCHIZOPHRENIA
     Dosage: 07AUG07-26SEP11;12MG,27SEP11-02OCT11;24MG,03OCT11-12APR12;193D
     Route: 048
     Dates: start: 20070807, end: 20120412
  2. DIOVAN [Concomitant]
     Indication: HYPERTENSION
     Dosage: TABS
     Route: 048
     Dates: start: 20110509
  3. CALSLOT [Concomitant]
     Indication: HYPERTENSION
     Dosage: TABS
     Route: 048
     Dates: start: 20111226
  4. MUCOSTA [Concomitant]
     Indication: GASTRITIS
     Dosage: TAB
     Route: 048
     Dates: start: 20060322, end: 20120415
  5. GASTER [Concomitant]
     Dates: start: 20111024, end: 20111107
  6. ALLELOCK [Concomitant]
     Dates: start: 20120412, end: 20120412
  7. ONON [Concomitant]
     Dates: start: 20120412, end: 20120412
  8. CLEANAL [Concomitant]
     Dates: start: 20120412, end: 20120412
  9. LIVOSTIN [Concomitant]
     Dosage: NASAL DROPS
     Route: 045
     Dates: start: 20120412, end: 20120412
  10. RISPERDAL [Concomitant]
     Dates: start: 20070807, end: 20111016

REACTIONS (2)
  - Withdrawal syndrome [Recovered/Resolved]
  - Neuroleptic malignant syndrome [Recovered/Resolved]
